FAERS Safety Report 5692142-8 (Version None)
Quarter: 2008Q2

REPORT INFORMATION
  Report Type: 
  Country: None (occurrence: None)
  Receive Date: 20080402
  Receipt Date: 20080325
  Transmission Date: 20081010
  Serious: Yes (Other)
  Sender: FDA-Public Use
  Company Number: A0706734A

PATIENT
  Age: 53 Year
  Sex: Male
  Weight: 82.7 kg

DRUGS (5)
  1. AVANDAMET [Suspect]
     Indication: DIABETES MELLITUS
     Route: 048
     Dates: start: 20061027
  2. GLYBURIDE [Suspect]
     Indication: DIABETES MELLITUS
     Dates: start: 20000101
  3. METFORMIN HCL [Concomitant]
     Indication: DIABETES MELLITUS
     Route: 048
     Dates: start: 20030101, end: 20061001
  4. GLUCONORM [Concomitant]
     Dosage: 2MG THREE TIMES PER DAY
     Route: 048
     Dates: start: 20080104
  5. FLUOXETINE [Concomitant]
     Dosage: 20MG PER DAY
     Route: 048
     Dates: start: 20000919

REACTIONS (3)
  - DEPRESSION [None]
  - DIZZINESS [None]
  - HYPERHIDROSIS [None]
